FAERS Safety Report 12250334 (Version 1)
Quarter: 2016Q2

REPORT INFORMATION
  Report Type: Spontaneous
  Country: NL (occurrence: NL)
  Receive Date: 20160408
  Receipt Date: 20160408
  Transmission Date: 20160815
  Serious: Yes (Hospitalization)
  Sender: FDA-Public Use
  Company Number: PHHY2016NL045422

PATIENT
  Age: 75 Year
  Sex: Female

DRUGS (6)
  1. ACENOCOUMAROL [Suspect]
     Active Substance: ACENOCOUMAROL
     Indication: PROPHYLAXIS
     Dosage: EXTRA INFO: VOLGENS SCHEMA TROMBOSEDIENST
     Route: 048
     Dates: start: 201302
  2. RANITIDINE HYDROCHLORIDE. [Suspect]
     Active Substance: RANITIDINE HYDROCHLORIDE
     Indication: GASTROOESOPHAGEAL REFLUX DISEASE
     Dosage: 150 MG QD, 1 KEER PER DAG 1 STUK(S), EXTRA INFO: ALLEEN WANNEER NODIG
     Route: 048
     Dates: start: 201511
  3. LEVOTHYROXINENATRIUM TEVA [Concomitant]
     Indication: PRODUCT USED FOR UNKNOWN INDICATION
     Dosage: 75 UG, QD, 1 DD 1
     Route: 048
  4. FOLIUMZUUR [Concomitant]
     Active Substance: FOLIC ACID
     Indication: PRODUCT USED FOR UNKNOWN INDICATION
     Dosage: 5 MG, QW2,2 X PER WEEK 1 TABLET
     Route: 048
  5. HYDROXOCOBALAMIN [Concomitant]
     Active Substance: HYDROXOCOBALAMIN
     Indication: PRODUCT USED FOR UNKNOWN INDICATION
     Dosage: 1 DF QW, 1 X PER WEEK 1 INJECTIE
     Route: 030
  6. D-CURE [Concomitant]
     Indication: PRODUCT USED FOR UNKNOWN INDICATION
     Dosage: 2 ML QMO, 1 X PER MAAND 2 AMPULLEN
     Route: 048

REACTIONS (1)
  - Arrhythmia [Recovering/Resolving]

NARRATIVE: CASE EVENT DATE: 20160315
